FAERS Safety Report 5746456-3 (Version None)
Quarter: 2008Q2

REPORT INFORMATION
  Report Type: 
  Country: None (occurrence: None)
  Receive Date: 20080522
  Receipt Date: 20080509
  Transmission Date: 20081010
  Serious: Yes (Other)
  Sender: FDA-Public Use
  Company Number: B0518931A

PATIENT
  Age: 43 Year

DRUGS (1)
  1. LAMOTRIGINE [Suspect]
     Route: 065

REACTIONS (1)
  - PSYCHOTIC DISORDER [None]
